FAERS Safety Report 21074357 (Version 1)
Quarter: 2022Q3

REPORT INFORMATION
  Report Type: Spontaneous
  Country: IN (occurrence: IN)
  Receive Date: 20220713
  Receipt Date: 20220713
  Transmission Date: 20221026
  Serious: Yes (Hospitalization)
  Sender: FDA-Public Use
  Company Number: IN-IPCA LABORATORIES LIMITED-IPC-2022-IN-000827

PATIENT

DRUGS (2)
  1. HYDROXYCHLOROQUINE [Suspect]
     Active Substance: HYDROXYCHLOROQUINE
     Indication: Arthralgia
     Dosage: UNK
     Route: 065
  2. BENZOCAINE [Concomitant]
     Active Substance: BENZOCAINE
     Indication: Arthralgia
     Dosage: UNK
     Route: 065

REACTIONS (5)
  - Rash maculo-papular [Recovering/Resolving]
  - Vomiting [Recovering/Resolving]
  - Blister [Recovering/Resolving]
  - Conjunctival hyperaemia [Recovering/Resolving]
  - Pruritus [Recovering/Resolving]
